FAERS Safety Report 22268825 (Version 2)
Quarter: 2024Q1

REPORT INFORMATION
  Report Type: Report from Study
  Country: IL (occurrence: IL)
  Receive Date: 20230501
  Receipt Date: 20240216
  Transmission Date: 20240409
  Serious: Yes (Hospitalization)
  Sender: FDA-Public Use
  Company Number: IL-002147023-NVSC2023IL095940

PATIENT
  Age: 74 Year
  Sex: Male

DRUGS (3)
  1. SANDOSTATIN LAR DEPOT [Suspect]
     Active Substance: OCTREOTIDE ACETATE
     Indication: Gastroenteropancreatic neuroendocrine tumour disease
     Dosage: 60 MG, Q4W (INTRAGLUTEAL)
     Route: 030
     Dates: start: 20140318
  2. SANDOSTATIN LAR DEPOT [Suspect]
     Active Substance: OCTREOTIDE ACETATE
     Dosage: UNK
     Route: 065
     Dates: start: 20240115
  3. SANDOSTATIN LAR DEPOT [Suspect]
     Active Substance: OCTREOTIDE ACETATE

REACTIONS (3)
  - Urinary tract obstruction [Recovered/Resolved]
  - Renal impairment [Unknown]
  - Incorrect dose administered [Unknown]
